FAERS Safety Report 11159548 (Version 1)
Quarter: 2015Q2

REPORT INFORMATION
  Report Type: Spontaneous
  Country: BR (occurrence: BR)
  Receive Date: 20150603
  Receipt Date: 20150603
  Transmission Date: 20150821
  Serious: Yes (Other)
  Sender: FDA-Public Use
  Company Number: BR-PFIZER INC-2015182774

PATIENT
  Age: 57 Year
  Sex: Female
  Weight: 83 kg

DRUGS (2)
  1. LYRICA [Suspect]
     Active Substance: PREGABALIN
     Indication: PAIN
  2. LYRICA [Suspect]
     Active Substance: PREGABALIN
     Indication: ANTIDEPRESSANT THERAPY
     Dosage: 3 CAPSULES OF 75 MG, DAILY
     Route: 048
     Dates: start: 2011

REACTIONS (7)
  - Osteoarthritis [Unknown]
  - Injury [Unknown]
  - Post procedural complication [Unknown]
  - Hypoaesthesia [Unknown]
  - Fibromyalgia [Unknown]
  - Intervertebral disc protrusion [Unknown]
  - Product use issue [Unknown]

NARRATIVE: CASE EVENT DATE: 2011
